FAERS Safety Report 13029840 (Version 1)
Quarter: 2016Q4

REPORT INFORMATION
  Report Type: Spontaneous
  Country: US (occurrence: US)
  Receive Date: 20161215
  Receipt Date: 20161215
  Transmission Date: 20170207
  Serious: Yes (Other)
  Sender: FDA-Public Use
  Company Number: US-AMGEN-USASP2016175655

PATIENT
  Sex: Female

DRUGS (1)
  1. XGEVA [Suspect]
     Active Substance: DENOSUMAB
     Indication: BREAST CANCER METASTATIC
     Dosage: UNK
     Route: 065

REACTIONS (5)
  - Metastases to lung [Unknown]
  - Diabetes mellitus [Unknown]
  - Breast cancer [Not Recovered/Not Resolved]
  - Metastases to bone [Unknown]
  - Abscess oral [Unknown]
